FAERS Safety Report 8083598-4 (Version None)
Quarter: 2012Q1

REPORT INFORMATION
  Report Type: 
  Country: None (occurrence: None)
  Receive Date: 20120127
  Receipt Date: 20110126
  Transmission Date: 20120608
  Serious: No
  Sender: FDA-Public Use
  Company Number: US-ABBOTT-11P-163-0700984-00

PATIENT
  Age: 52 Year
  Sex: Female

DRUGS (9)
  1. ALLEGRA [Concomitant]
     Indication: HYPERSENSITIVITY
  2. ASTEPRO [Concomitant]
     Indication: PRODUCT USED FOR UNKNOWN INDICATION
     Route: 045
  3. ALLERGY SHOTS [Concomitant]
     Indication: PRODUCT USED FOR UNKNOWN INDICATION
  4. HUMIRA [Suspect]
     Indication: CROHN'S DISEASE
     Dates: start: 20101201
  5. NASONEX [Concomitant]
     Indication: PRODUCT USED FOR UNKNOWN INDICATION
  6. SINGULAIR [Concomitant]
     Indication: HYPERSENSITIVITY
     Dosage: AT BEDTIME
  7. IRON SIPPLEMENT [Concomitant]
     Indication: ANAEMIA
  8. VITAMIN B-12 [Concomitant]
     Indication: PRODUCT USED FOR UNKNOWN INDICATION
     Route: 050
  9. ADVAIR DISKUS 100/50 [Concomitant]
     Indication: HYPERSENSITIVITY
     Route: 055

REACTIONS (2)
  - INFUSION SITE PAIN [None]
  - INJECTION SITE PAIN [None]
